FAERS Safety Report 5921569-1 (Version None)
Quarter: 2008Q4

REPORT INFORMATION
  Report Type: 
  Country: None (occurrence: None)
  Receive Date: 20081017
  Receipt Date: 20081016
  Transmission Date: 20090506
  Serious: Yes (Hospitalization)
  Sender: FDA-Public Use
  Company Number: US-BRISTOL-MYERS SQUIBB COMPANY-14372486

PATIENT
  Age: 59 Year
  Sex: Male
  Weight: 127 kg

DRUGS (7)
  1. CARBOPLATIN INJECTION [Suspect]
     Indication: NON-SMALL CELL LUNG CANCER
     Route: 042
     Dates: start: 20060824, end: 20060824
  2. PACLITAXEL [Suspect]
     Indication: NON-SMALL CELL LUNG CANCER
     Dosage: FORMULATION: INJ.
     Route: 042
     Dates: start: 20060824, end: 20060824
  3. TARCEVA [Suspect]
     Indication: NON-SMALL CELL LUNG CANCER
     Dosage: FORMULATION: TAB.
     Route: 048
     Dates: start: 20060825
  4. AMBIEN [Concomitant]
  5. DOXYCYCLINE [Concomitant]
  6. DARVOCET [Concomitant]
  7. PROPOXYPHENE [Concomitant]

REACTIONS (2)
  - CELLULITIS [None]
  - DEEP VEIN THROMBOSIS [None]
